FAERS Safety Report 15056523 (Version 1)
Quarter: 2018Q2

REPORT INFORMATION
  Report Type: Spontaneous
  Country: US (occurrence: US)
  Receive Date: 20180623
  Receipt Date: 20180623
  Transmission Date: 20180711
  Serious: No
  Sender: FDA-Public Use
  Company Number: US-LEO PHARMA-309517

PATIENT
  Sex: Male

DRUGS (1)
  1. PROTOPIC [Suspect]
     Active Substance: TACROLIMUS
     Indication: ECZEMA
     Route: 061
     Dates: start: 2018

REACTIONS (1)
  - Drug effect incomplete [Unknown]

NARRATIVE: CASE EVENT DATE: 2018
